FAERS Safety Report 10964984 (Version 1)
Quarter: 2015Q1

REPORT INFORMATION
  Report Type: Spontaneous
  Country: US (occurrence: US)
  Receive Date: 20150330
  Receipt Date: 20150330
  Transmission Date: 20150721
  Serious: Yes (Other)
  Sender: FDA-Public Use
  Company Number: US-AMGEN-USASP2015028992

PATIENT
  Age: 43 Year
  Sex: Female

DRUGS (2)
  1. ENBREL [Suspect]
     Active Substance: ETANERCEPT
     Indication: PSORIATIC ARTHROPATHY
     Dosage: 50 MG, QWK
     Route: 065
     Dates: start: 201409
  2. ENBREL [Suspect]
     Active Substance: ETANERCEPT
     Indication: PSORIASIS

REACTIONS (15)
  - Pruritus generalised [Not Recovered/Not Resolved]
  - Dyspnoea [Recovered/Resolved]
  - Malnutrition [Recovered/Resolved]
  - Pharyngitis streptococcal [Recovered/Resolved]
  - Anaphylactic shock [Recovered/Resolved]
  - Injection site pruritus [Not Recovered/Not Resolved]
  - Tonsillitis [Recovered/Resolved]
  - Muscle spasms [Recovered/Resolved]
  - Injection site urticaria [Not Recovered/Not Resolved]
  - Dehydration [Recovered/Resolved]
  - Injection site reaction [Not Recovered/Not Resolved]
  - Bronchitis [Recovered/Resolved]
  - Injection site erythema [Not Recovered/Not Resolved]
  - Injection site warmth [Not Recovered/Not Resolved]
  - Upper respiratory tract infection [Recovered/Resolved]

NARRATIVE: CASE EVENT DATE: 2014
